FAERS Safety Report 7455730-4 (Version None)
Quarter: 2011Q2

REPORT INFORMATION
  Report Type: 
  Country: None (occurrence: None)
  Receive Date: 20110429
  Receipt Date: 20110420
  Transmission Date: 20111010
  Serious: Yes (Hospitalization)
  Sender: FDA-Public Use
  Company Number: US-US-EMD SERONO, INC.-7055194

PATIENT
  Sex: Female
  Weight: 77 kg

DRUGS (5)
  1. GABAPENTIN [Concomitant]
  2. REBIF [Suspect]
     Route: 058
     Dates: start: 20110101
  3. REBIF [Suspect]
     Indication: RELAPSING-REMITTING MULTIPLE SCLEROSIS
     Route: 058
     Dates: start: 20110322, end: 20110101
  4. DETROL LA [Concomitant]
  5. TIZANIDINE [Concomitant]
     Indication: TREMOR

REACTIONS (5)
  - MUSCULOSKELETAL DISORDER [None]
  - HYPOAESTHESIA [None]
  - FALL [None]
  - HEAD INJURY [None]
  - BLOOD POTASSIUM DECREASED [None]
